FAERS Safety Report 16371177 (Version 2)
Quarter: 2021Q1

REPORT INFORMATION
  Report Type: Report from Study
  Country: IL (occurrence: IL)
  Receive Date: 20190530
  Receipt Date: 20210315
  Transmission Date: 20210419
  Serious: Yes (Other)
  Sender: FDA-Public Use
  Company Number: IL-ROCHE-2327289

PATIENT
  Age: 65 Year
  Sex: Female
  Weight: 75 kg

DRUGS (16)
  1. VEMURAFENIB. [Suspect]
     Active Substance: VEMURAFENIB
     Indication: METASTATIC MALIGNANT MELANOMA
     Dosage: DATE OF MOST RECENT DOSE OF VEMURAFENIB PRIOR TO EVENT ONSET: 24/OCT/2018?(FOUR, 240 MG TABLETS)
     Route: 048
     Dates: start: 20171218
  2. BETACAROTENE [Concomitant]
     Active Substance: .BETA.-CAROTENE
     Indication: SUNBURN
     Dates: start: 20180921, end: 20180925
  3. BETACAROTENE [Concomitant]
     Active Substance: .BETA.-CAROTENE
     Dates: start: 20190811, end: 20190826
  4. OPTALGIN [Concomitant]
     Active Substance: METAMIZOLE
     Indication: INFLUENZA
     Dates: start: 20200223, end: 20200301
  5. NEXIUM [Concomitant]
     Active Substance: ESOMEPRAZOLE MAGNESIUM
     Dates: start: 20200909, end: 20200919
  6. LOPERAMIDE [Concomitant]
     Active Substance: LOPERAMIDE
     Indication: DIARRHOEA
     Route: 048
     Dates: start: 20171221
  7. ACYCLOVIR. [Concomitant]
     Active Substance: ACYCLOVIR
     Indication: HERPES ZOSTER
     Dates: start: 20210201, end: 20210205
  8. COBIMETINIB. [Suspect]
     Active Substance: COBIMETINIB
     Indication: METASTATIC MALIGNANT MELANOMA
     Dosage: DATE OF MOST RECENT DOSE OF COBIMETINIB PRIOR TO EVENT ONSET: 24/OCT/2018 (THREE, 60 MG TABLETS)?END
     Route: 048
     Dates: start: 20171218
  9. REMDESIVIR. [Concomitant]
     Active Substance: REMDESIVIR
     Indication: COVID-19
     Dates: start: 20200910, end: 20200915
  10. LORASTINE [Concomitant]
     Active Substance: LORATADINE
     Indication: HYPERSENSITIVITY
     Dates: start: 20190211, end: 20190305
  11. CLEXANE [Concomitant]
     Active Substance: ENOXAPARIN SODIUM
     Dates: start: 20200909, end: 20200920
  12. FERROUS SULFATE. [Concomitant]
     Active Substance: FERROUS SULFATE
     Indication: ANAEMIA
     Dates: start: 20210101
  13. PLACEBO [Suspect]
     Active Substance: UNSPECIFIED INGREDIENT
     Indication: METASTATIC MALIGNANT MELANOMA
     Dosage: DATE OF MOST RECENT DOSE OF BLINDED ATEZOLIZUMAB PRIOR TO AE ONSET: 23/OCT/2018
     Route: 042
     Dates: start: 20180115
  14. CLOBETASOL PROPIONATE. [Concomitant]
     Active Substance: CLOBETASOL PROPIONATE
     Indication: HYPERSENSITIVITY
     Route: 061
     Dates: start: 20190213, end: 20190305
  15. DEXAMETHASONE. [Concomitant]
     Active Substance: DEXAMETHASONE
     Indication: COVID-19
     Dates: start: 20200909, end: 20200919
  16. ZINNAT [Concomitant]
     Active Substance: CEFUROXIME
     Indication: URINARY TRACT INFECTION
     Dates: start: 20201115, end: 20201119

REACTIONS (1)
  - Cholangitis [Not Recovered/Not Resolved]

NARRATIVE: CASE EVENT DATE: 20181024
